FAERS Safety Report 21566651 (Version 1)
Quarter: 2022Q4

REPORT INFORMATION
  Report Type: Spontaneous
  Country: ES (occurrence: ES)
  Receive Date: 20221108
  Receipt Date: 20221108
  Transmission Date: 20230113
  Serious: Yes (Hospitalization, Other)
  Sender: FDA-Public Use
  Company Number: ES-BAYER-2022A151244

PATIENT
  Age: 74 Year
  Sex: Male

DRUGS (3)
  1. SORAFENIB [Suspect]
     Active Substance: SORAFENIB
     Indication: Thyroid cancer
     Dosage: 800 MG DAY
     Dates: start: 201712
  2. LENVATINIB [Concomitant]
     Active Substance: LENVATINIB
     Dosage: 24 MG DAY
     Route: 048
     Dates: start: 201803
  3. LENVATINIB [Concomitant]
     Active Substance: LENVATINIB
     Dosage: 20 MG DAY

REACTIONS (4)
  - Dermatitis [None]
  - Cardiac failure [None]
  - Atrial fibrillation [None]
  - Hypertension [None]
